FAERS Safety Report 8132598-4 (Version None)
Quarter: 2012Q1

REPORT INFORMATION
  Report Type: 
  Country: None (occurrence: None)
  Receive Date: 20120213
  Receipt Date: 20120203
  Transmission Date: 20120608
  Serious: Yes (Other)
  Sender: FDA-Public Use
  Company Number: GB-NOVOPROD-344221

PATIENT
  Age: 58 Year
  Weight: 100 kg

DRUGS (6)
  1. VICTOZA [Suspect]
     Indication: DIABETES MELLITUS
     Dosage: 1.2 MG, QD
     Route: 058
     Dates: start: 20111214, end: 20120104
  2. METFORMIN HCL [Concomitant]
     Dosage: 1 G, QD
     Route: 048
  3. ASPIRIN [Concomitant]
     Dosage: 75 MG, QD
     Route: 048
  4. BUMETANIDE [Concomitant]
     Dosage: 1 MG, QD
     Route: 048
  5. ISOSORBIDE MONONITE [Concomitant]
     Dosage: 120 MG, QD
     Route: 048
  6. ATORVASTATIN [Concomitant]
     Dosage: 10 MG, QD
     Route: 048

REACTIONS (2)
  - ANGINA PECTORIS [None]
  - PALPITATIONS [None]
